FAERS Safety Report 6022097-8 (Version None)
Quarter: 2008Q4

REPORT INFORMATION
  Report Type: 
  Country: None (occurrence: None)
  Receive Date: 20081229
  Receipt Date: 20081219
  Transmission Date: 20090506
  Serious: Yes (Hospitalization)
  Sender: FDA-Public Use
  Company Number: FR-ABBOTT-08P-056-0494736-00

PATIENT
  Sex: Male

DRUGS (5)
  1. ENANTONE LP 11.25 MG [Suspect]
     Indication: PROSTATE CANCER
     Route: 030
     Dates: start: 20080601
  2. PREVISCAN [Concomitant]
     Indication: DRUG USE FOR UNKNOWN INDICATION
  3. AMLOR [Concomitant]
     Indication: DRUG USE FOR UNKNOWN INDICATION
  4. HEMIGOXINE [Concomitant]
     Indication: DRUG USE FOR UNKNOWN INDICATION
  5. IMOVANE [Concomitant]
     Indication: DRUG USE FOR UNKNOWN INDICATION

REACTIONS (4)
  - DYSPNOEA [None]
  - HYPOXIA [None]
  - PULMONARY ARTERIAL HYPERTENSION [None]
  - SYNCOPE [None]
